FAERS Safety Report 10570497 (Version 1)
Quarter: 2014Q4

REPORT INFORMATION
  Report Type: Spontaneous
  Country: US (occurrence: None)
  Receive Date: 20141106
  Receipt Date: 20141106
  Transmission Date: 20150529
  Serious: Yes (Other)
  Sender: FDA-Public Use
  Company Number: None

PATIENT
  Age: 59 Year
  Sex: Male

DRUGS (1)
  1. ULORIC [Suspect]
     Active Substance: FEBUXOSTAT
     Indication: GOUT
     Dosage: 1, ONCE DAILY.
     Dates: start: 20100630, end: 20141031

REACTIONS (6)
  - Alopecia [None]
  - Renal disorder [None]
  - Psoriasis [None]
  - Diarrhoea [None]
  - Abdominal pain [None]
  - Urinary retention [None]

NARRATIVE: CASE EVENT DATE: 20141105
